FAERS Safety Report 20688687 (Version 2)
Quarter: 2022Q2

REPORT INFORMATION
  Report Type: Spontaneous
  Country: US (occurrence: US)
  Receive Date: 20220408
  Receipt Date: 20220411
  Transmission Date: 20220720
  Serious: Yes (Other)
  Sender: FDA-Public Use
  Company Number: US-JNJFOC-20220400800

PATIENT
  Age: 50 Year
  Sex: Female
  Weight: 59.020 kg

DRUGS (6)
  1. DARZALEX [Suspect]
     Active Substance: DARATUMUMAB
     Indication: Plasma cell myeloma
     Dosage: LAST DOSE OF  DARZALEX ON 03JAN2020,  RECEIVED 9? TREATMENT COURSES
     Route: 065
     Dates: start: 20191025, end: 20200103
  2. DEXAMETHASONE [Concomitant]
     Active Substance: DEXAMETHASONE
     Indication: Product used for unknown indication
     Route: 065
  3. ALLOPURINOL [Concomitant]
     Active Substance: ALLOPURINOL
     Indication: Renal disorder
  4. VALTREX [Concomitant]
     Active Substance: VALACYCLOVIR HYDROCHLORIDE
     Indication: Product used for unknown indication
     Route: 065
  5. REVLIMID [Concomitant]
     Active Substance: LENALIDOMIDE
     Indication: Product used for unknown indication
     Route: 065
  6. METHYLCOBALAMIN [Concomitant]
     Active Substance: METHYLCOBALAMIN
     Indication: Product used for unknown indication
     Route: 002

REACTIONS (3)
  - Natural killer cell count decreased [Unknown]
  - Accidental overdose [Unknown]
  - Herpes zoster [Unknown]

NARRATIVE: CASE EVENT DATE: 20191212
